FAERS Safety Report 20484290 (Version 1)
Quarter: 2022Q1

REPORT INFORMATION
  Report Type: Report from Study
  Country: US (occurrence: US)
  Receive Date: 20220217
  Receipt Date: 20220217
  Transmission Date: 20220423
  Serious: No
  Sender: FDA-Public Use
  Company Number: US-BIOVITRUM-2021US0565

PATIENT
  Age: 41 Year
  Sex: Female

DRUGS (2)
  1. KINERET [Suspect]
     Active Substance: ANAKINRA
     Indication: Dressler^s syndrome
     Route: 058
     Dates: start: 20210111
  2. KINERET [Suspect]
     Active Substance: ANAKINRA
     Indication: Pericarditis

REACTIONS (7)
  - Influenza like illness [Unknown]
  - Inflammation [Unknown]
  - White blood cell count increased [Unknown]
  - Pyrexia [Unknown]
  - Selective IgA immunodeficiency [Unknown]
  - Infection [Unknown]
  - Off label use [Not Recovered/Not Resolved]

NARRATIVE: CASE EVENT DATE: 20210111
